FAERS Safety Report 7150068-7 (Version None)
Quarter: 2010Q4

REPORT INFORMATION
  Report Type: 
  Country: None (occurrence: None)
  Receive Date: 20101210
  Receipt Date: 20101130
  Transmission Date: 20110411
  Serious: Yes (Other)
  Sender: FDA-Public Use
  Company Number: US-PFIZER INC-2010160847

PATIENT
  Sex: Male
  Weight: 86 kg

DRUGS (1)
  1. XALATAN [Suspect]
     Indication: EYE DISORDER
     Dosage: 1 DROP IN EACH EYE
     Route: 047
     Dates: start: 20070101

REACTIONS (2)
  - ABNORMAL SENSATION IN EYE [None]
  - VISION BLURRED [None]
